FAERS Safety Report 23803278 (Version 1)
Quarter: 2024Q2

REPORT INFORMATION
  Report Type: Spontaneous
  Country: US (occurrence: None)
  Receive Date: 20240430
  Receipt Date: 20240430
  Transmission Date: 20240717
  Serious: Yes (Other)
  Sender: FDA-Public Use
  Company Number: None

PATIENT
  Age: 43 Year
  Sex: Female
  Weight: 81 kg

DRUGS (9)
  1. MONISTAT 1 COMBINATION PACK [Suspect]
     Active Substance: MICONAZOLE NITRATE
     Indication: Fungal infection
     Dosage: OTHER QUANTITY : 1 SUPPOSITORY(IES);?
     Route: 067
     Dates: start: 20240429, end: 20240429
  2. METHOTREXATE [Concomitant]
     Active Substance: METHOTREXATE
  3. NALTREXONE [Concomitant]
     Active Substance: NALTREXONE
  4. HYDROXYCHLOROQUINE [Concomitant]
  5. PROGESTERONE [Concomitant]
     Active Substance: PROGESTERONE
  6. Vitex [Concomitant]
  7. FOLIC ACID [Concomitant]
     Active Substance: FOLIC ACID
  8. b complex [Concomitant]
  9. PROBIOTICS NOS [Concomitant]
     Active Substance: PROBIOTICS NOS

REACTIONS (2)
  - Application site pain [None]
  - Application site pain [None]

NARRATIVE: CASE EVENT DATE: 20240429
